FAERS Safety Report 16341540 (Version 1)
Quarter: 2019Q2

REPORT INFORMATION
  Report Type: Spontaneous
  Country: GB (occurrence: GB)
  Receive Date: 20190522
  Receipt Date: 20190522
  Transmission Date: 20190711
  Serious: Yes (Other)
  Sender: FDA-Public Use
  Company Number: GB-AUROBINDO-AUR-APL-2019-026375

PATIENT

DRUGS (1)
  1. LOPERAMIDE CAPSULE, HARD [Suspect]
     Active Substance: LOPERAMIDE
     Indication: DIARRHOEA
     Dosage: UNK
     Route: 065

REACTIONS (3)
  - Injury [Unknown]
  - Depression [Unknown]
  - Anxiety [Unknown]
